FAERS Safety Report 9774283 (Version 2)
Quarter: 2014Q2

REPORT INFORMATION
  Report Type: Spontaneous
  Country: DE (occurrence: DE)
  Receive Date: 20131220
  Receipt Date: 20140530
  Transmission Date: 20141212
  Serious: Yes (Death)
  Sender: FDA-Public Use
  Company Number: DE-JNJFOC-20131211435

PATIENT
  Age: 79 Year
  Sex: Female

DRUGS (12)
  1. XARELTO [Suspect]
     Indication: CEREBROVASCULAR ACCIDENT PROPHYLAXIS
     Dosage: 15 MG (2X1)
     Route: 048
     Dates: start: 201303, end: 20131001
  2. XARELTO [Suspect]
     Indication: ATRIAL FIBRILLATION
     Dosage: 15 MG (2X1)
     Route: 048
     Dates: start: 201303, end: 20131001
  3. AMIODARON [Concomitant]
     Route: 065
  4. METOHEXAL SUCC [Concomitant]
     Route: 065
  5. ZANERIL [Concomitant]
     Route: 065
  6. PANTOPRAZOLE [Concomitant]
     Route: 065
  7. ZOPICLON [Concomitant]
     Route: 065
  8. TAVOR [Concomitant]
     Route: 065
  9. METAMIZOL [Concomitant]
     Route: 065
  10. MACROGOL [Concomitant]
     Indication: CONSTIPATION
     Route: 065
  11. HYDROCHLOROTHIAZIDE WITH TRIAMTERENE [Concomitant]
     Route: 065
  12. HCT [Concomitant]
     Route: 065

REACTIONS (3)
  - Interstitial lung disease [Fatal]
  - Eosinophilic pneumonia [Fatal]
  - Lung disorder [Fatal]
